FAERS Safety Report 12414799 (Version 2)
Quarter: 2016Q2

REPORT INFORMATION
  Report Type: Spontaneous
  Country: IT (occurrence: IT)
  Receive Date: 20160529
  Receipt Date: 20160623
  Transmission Date: 20160815
  Serious: Yes (Disabling, Other)
  Sender: FDA-Public Use
  Company Number: PHHY2016IT073071

PATIENT
  Age: 51 Year
  Sex: Female

DRUGS (2)
  1. ZOMETA [Suspect]
     Active Substance: ZOLEDRONIC ACID
     Indication: METASTASES TO BONE
     Dosage: ONE POSOLOGY UNIT OT, QMO
     Route: 042
     Dates: start: 20130101, end: 20140801
  2. DENOSUMAB [Suspect]
     Active Substance: DENOSUMAB
     Indication: METASTASES TO BONE
     Route: 042
     Dates: start: 20130101, end: 20140801

REACTIONS (8)
  - Osteonecrosis of jaw [Recovered/Resolved with Sequelae]
  - Pain [Unknown]
  - Exposed bone in jaw [Unknown]
  - Bone lesion [Unknown]
  - Swelling [Unknown]
  - Purulent discharge [Unknown]
  - Erythema [Unknown]
  - Fistula [Unknown]

NARRATIVE: CASE EVENT DATE: 20140801
